FAERS Safety Report 8834661 (Version 1)
Quarter: 2012Q4

REPORT INFORMATION
  Report Type: 
  Country: CR (occurrence: CR)
  Receive Date: 20121010
  Receipt Date: 20121010
  Transmission Date: 20130627
  Serious: Yes (Disabling)
  Sender: FDA-Public Use
  Company Number: CR-ROCHE-1143621

PATIENT
  Age: 21 Year
  Sex: Male
  Weight: 60 kg

DRUGS (3)
  1. ROACCUTANE [Suspect]
     Indication: ACNE
     Route: 048
     Dates: start: 20111101, end: 20120303
  2. SYMBICORT [Concomitant]
     Indication: ASTHMA
     Route: 055
  3. METICORTEN [Concomitant]
     Indication: ACNE
     Route: 048
     Dates: start: 20111201, end: 20120101

REACTIONS (1)
  - Acne [Recovering/Resolving]
